FAERS Safety Report 4530530-3 (Version None)
Quarter: 2004Q4

REPORT INFORMATION
  Report Type: 
  Country: None (occurrence: None)
  Receive Date: 20041216
  Receipt Date: 20041206
  Transmission Date: 20050328
  Serious: Yes (Death)
  Sender: FDA-Public Use
  Company Number: F04200400309

PATIENT
  Age: 68 Year
  Sex: Female

DRUGS (7)
  1. PLAVIX [Suspect]
     Indication: ATRIAL FIBRILLATION
     Dosage: 450 MG ONCE / 75 MG OD ORAL
     Route: 048
     Dates: start: 20041125, end: 20041125
  2. PLAVIX [Suspect]
     Indication: ATRIAL FIBRILLATION
     Dosage: 450 MG ONCE / 75 MG OD ORAL
     Route: 048
     Dates: start: 20041126, end: 20041128
  3. ASPIRIN [Suspect]
     Indication: ATRIAL FIBRILLATION
     Dosage: 300 MG ORAL
     Route: 048
     Dates: start: 20041125, end: 20041128
  4. HEPARIN [Concomitant]
  5. BISOPROLOL (BISOPROLOL) [Concomitant]
  6. RAMIPRIL [Concomitant]
  7. HYDROCHLOROTHIAZID (HYDROCHLOROTHIAZIDE) [Concomitant]

REACTIONS (7)
  - ACTIVATED PARTIAL THROMBOPLASTIN TIME PROLONGED [None]
  - BRAIN COMPRESSION [None]
  - CEREBRAL INFARCTION [None]
  - CORONARY ARTERY THROMBOSIS [None]
  - DRUG INEFFECTIVE [None]
  - HAEMATURIA [None]
  - RENAL EMBOLISM [None]
